FAERS Safety Report 25801651 (Version 3)
Quarter: 2025Q4

REPORT INFORMATION
  Report Type: Report from Study
  Country: US (occurrence: US)
  Receive Date: 20250915
  Receipt Date: 20251128
  Transmission Date: 20260118
  Serious: Yes (Other)
  Sender: ACADIA PHARMACEUTICALS
  Company Number: US-ACADIA PHARMACEUTICALS INC.-ACA-2025-PIM-010126

PATIENT
  Sex: Male

DRUGS (24)
  1. NUPLAZID [Suspect]
     Active Substance: PIMAVANSERIN TARTRATE
     Indication: Parkinson^s disease psychosis
     Dosage: 34 MILLIGRAM, QD
     Route: 048
     Dates: start: 20250221, end: 20251119
  2. NUPLAZID [Suspect]
     Active Substance: PIMAVANSERIN TARTRATE
     Indication: Hallucination
  3. ASPIRIN [Concomitant]
     Active Substance: ASPIRIN
  4. COENZYME Q10 [Concomitant]
     Active Substance: DIETARY SUPPLEMENT\UBIDECARENONE
  5. FOLIC ACID [Concomitant]
     Active Substance: FOLIC ACID
  6. VITAMIN B12 [Concomitant]
     Active Substance: CYANOCOBALAMIN
     Dosage: 1000 MCG
  7. CARBIDOPA\LEVODOPA [Concomitant]
     Active Substance: CARBIDOPA\LEVODOPA
  8. TRAZODONE [Concomitant]
     Active Substance: TRAZODONE HYDROCHLORIDE
  9. BUPROPION HYDROCHLORIDE XL [Concomitant]
     Active Substance: BUPROPION HYDROCHLORIDE
  10. GENTAMICIN [Concomitant]
     Active Substance: GENTAMICIN
  11. CITALOPRAM [Concomitant]
     Active Substance: CITALOPRAM
  12. PIOGLITAZONE [Concomitant]
     Active Substance: PIOGLITAZONE
  13. PRAZOSIN [Concomitant]
     Active Substance: PRAZOSIN
  14. CELECOXIB [Concomitant]
     Active Substance: CELECOXIB
  15. FLUTICASONE [Concomitant]
     Active Substance: FLUTICASONE
     Dosage: SP (120) RX
  16. HYDROCODONE BITARTRATE AND ACETAMINOPHEN [Concomitant]
     Active Substance: ACETAMINOPHEN\HYDROCODONE BITARTRATE
  17. DONEPEZIL [Concomitant]
     Active Substance: DONEPEZIL
  18. ROSUVASTATIN [Concomitant]
     Active Substance: ROSUVASTATIN
  19. JANUVIA [Concomitant]
     Active Substance: SITAGLIPTIN PHOSPHATE
  20. FAMOTIDINE [Concomitant]
     Active Substance: FAMOTIDINE
  21. NALOXONE [Concomitant]
     Active Substance: NALOXONE
  22. PREGABALIN [Concomitant]
     Active Substance: PREGABALIN
  23. JARDIANCE [Concomitant]
     Active Substance: EMPAGLIFLOZIN
  24. NORCO [Concomitant]
     Active Substance: ACETAMINOPHEN\HYDROCODONE BITARTRATE

REACTIONS (4)
  - Condition aggravated [Not Recovered/Not Resolved]
  - Hallucination, tactile [Not Recovered/Not Resolved]
  - Feeling jittery [Not Recovered/Not Resolved]
  - Drug ineffective [Recovered/Resolved]

NARRATIVE: CASE EVENT DATE: 20250101
